FAERS Safety Report 4413196-2 (Version None)
Quarter: 2004Q3

REPORT INFORMATION
  Report Type: 
  Country: None (occurrence: None)
  Receive Date: 20040802
  Receipt Date: 20040802
  Transmission Date: 20050211
  Serious: Yes (Death)
  Sender: FDA-Public Use
  Company Number: None

PATIENT
  Age: 43 Year
  Sex: Female

DRUGS (1)
  1. MYOBLOC [Suspect]
     Indication: MUSCLE SPASMS
     Dosage: MYOBLOC (BOTULINUMTOWN TYPE B) INTRADERMAL INJECTION1 TIME 5,000U/ML
     Route: 023
     Dates: start: 20040424, end: 20040422

REACTIONS (1)
  - DEATH [None]
